FAERS Safety Report 9893788 (Version 1)
Quarter: 2014Q1

REPORT INFORMATION
  Report Type: Other
  Country: JP (occurrence: JP)
  Receive Date: 20140213
  Receipt Date: 20140213
  Transmission Date: 20141002
  Serious: Yes (Other)
  Sender: FDA-Public Use
  Company Number: JP-ACTELION-A-CH2014-94767

PATIENT
  Age: 11 Year
  Sex: Female

DRUGS (3)
  1. TRACLEER [Suspect]
     Indication: PULMONARY ARTERIAL HYPERTENSION
     Dosage: 62.5 MG, BID
     Route: 048
  2. EPOPROSTENOL SODIUM [Concomitant]
  3. SILDENAFIL CITRATE [Concomitant]

REACTIONS (10)
  - Disseminated intravascular coagulation [Recovered/Resolved]
  - Pulmonary haemorrhage [Recovered/Resolved]
  - Renal failure acute [Recovered/Resolved]
  - Finger amputation [Unknown]
  - Necrosis ischaemic [Unknown]
  - Spinal cord infarction [Unknown]
  - Paraplegia [Unknown]
  - Interstitial lung disease [Recovering/Resolving]
  - Pulmonary arterial hypertension [Recovering/Resolving]
  - Disease progression [Recovering/Resolving]
